FAERS Safety Report 5964190-1 (Version None)
Quarter: 2008Q4

REPORT INFORMATION
  Report Type: 
  Country: None (occurrence: None)
  Receive Date: 20081119
  Receipt Date: 20081008
  Transmission Date: 20090506
  Serious: No
  Sender: FDA-Public Use
  Company Number: WAES 0810USA02294

PATIENT

DRUGS (1)
  1. JANUVIA [Suspect]
     Dosage: PO
     Route: 048
     Dates: start: 20071119

REACTIONS (14)
  - ABDOMINAL PAIN UPPER [None]
  - ABNORMAL DREAMS [None]
  - ADVERSE EVENT [None]
  - ARRHYTHMIA [None]
  - ARTHRALGIA [None]
  - BACK PAIN [None]
  - HEADACHE [None]
  - HYPERTENSION [None]
  - NIGHT SWEATS [None]
  - OROPHARYNGEAL PAIN [None]
  - PERIPHERAL COLDNESS [None]
  - RESTLESSNESS [None]
  - SINUS DISORDER [None]
  - SWELLING [None]
